FAERS Safety Report 7654097-6 (Version None)
Quarter: 2011Q3

REPORT INFORMATION
  Report Type: 
  Country: None (occurrence: None)
  Receive Date: 20110803
  Receipt Date: 20110725
  Transmission Date: 20111222
  Serious: Yes (Other)
  Sender: FDA-Public Use
  Company Number: PHFR2011GB04420

PATIENT
  Sex: Male

DRUGS (1)
  1. CLOZAPINE [Suspect]
     Indication: SCHIZOPHRENIA
     Route: 048
     Dates: start: 20110614

REACTIONS (7)
  - MALAISE [None]
  - COLD SWEAT [None]
  - FEELING COLD [None]
  - DYSARTHRIA [None]
  - PALLOR [None]
  - GAIT DISTURBANCE [None]
  - VOMITING [None]
